FAERS Safety Report 21385842 (Version 1)
Quarter: 2022Q3

REPORT INFORMATION
  Report Type: Spontaneous
  Country: KR (occurrence: KR)
  Receive Date: 20220928
  Receipt Date: 20220928
  Transmission Date: 20221027
  Serious: Yes (Other)
  Sender: FDA-Public Use
  Company Number: KR-PFIZER INC-PV202200065028

PATIENT
  Age: 15 Year
  Sex: Male

DRUGS (3)
  1. VANCOMYCIN HYDROCHLORIDE [Suspect]
     Active Substance: VANCOMYCIN HYDROCHLORIDE
     Indication: Endocarditis staphylococcal
     Dosage: 1 G, 2X/DAY
     Route: 042
  2. GENTAMICIN [Concomitant]
     Active Substance: GENTAMICIN
     Indication: Endocarditis staphylococcal
     Dosage: 60 MG, 3X/DAY
  3. NAFCILLIN SODIUM [Concomitant]
     Active Substance: NAFCILLIN SODIUM
     Indication: Endocarditis staphylococcal
     Dosage: 1 G, 2X/DAY

REACTIONS (1)
  - Leukopenia [Recovered/Resolved]
